FAERS Safety Report 26121956 (Version 1)
Quarter: 2025Q4

REPORT INFORMATION
  Report Type: Spontaneous
  Country: GB (occurrence: GB)
  Receive Date: 20251204
  Receipt Date: 20251204
  Transmission Date: 20260118
  Serious: Yes (Other)
  Sender: TEVA
  Company Number: GB-TEVA-VS-3397228

PATIENT
  Age: 54 Year

DRUGS (1)
  1. ALBUTEROL SULFATE [Suspect]
     Active Substance: ALBUTEROL SULFATE
     Indication: Product used for unknown indication
     Dosage: INHALATION METERED DOSE AEROSOL, ROA: RESPIRATORY (INHALATION)
     Route: 065

REACTIONS (3)
  - Loss of consciousness [Recovered/Resolved]
  - Ear injury [Unknown]
  - Contusion [Unknown]

NARRATIVE: CASE EVENT DATE: 20251106
